FAERS Safety Report 16361364 (Version 1)
Quarter: 2019Q2

REPORT INFORMATION
  Report Type: Report from Study
  Country: CA (occurrence: CA)
  Receive Date: 20190528
  Receipt Date: 20190528
  Transmission Date: 20190711
  Serious: Yes (Hospitalization, Other)
  Sender: FDA-Public Use
  Company Number: CA-ROCHE-2308108

PATIENT
  Age: 56 Year
  Sex: Female

DRUGS (4)
  1. PREDNISONE. [Concomitant]
     Active Substance: PREDNISONE
  2. CELLCEPT [Suspect]
     Active Substance: MYCOPHENOLATE MOFETIL\MYCOPHENOLATE MOFETIL HYDROCHLORIDE
     Indication: CASTLEMAN^S DISEASE
     Route: 065
     Dates: start: 2018, end: 2018
  3. RITUXAN [Suspect]
     Active Substance: RITUXIMAB
     Indication: CASTLEMAN^S DISEASE
     Route: 042
     Dates: start: 2019
  4. RITUXAN [Suspect]
     Active Substance: RITUXIMAB
     Dosage: NOT THROUGH RPAP
     Route: 042
     Dates: start: 20190404, end: 20190419

REACTIONS (11)
  - Lymphadenopathy [Unknown]
  - Arthralgia [Unknown]
  - Thrombocytopenia [Unknown]
  - Pyrexia [Unknown]
  - Castleman^s disease [Unknown]
  - Anaphylactic shock [Unknown]
  - Abdominal pain [Unknown]
  - Ill-defined disorder [Unknown]
  - Generalised oedema [Unknown]
  - Anaphylactoid reaction [Unknown]
  - Infusion related reaction [Unknown]

NARRATIVE: CASE EVENT DATE: 20190419
